FAERS Safety Report 8779829 (Version 1)
Quarter: 2012Q4

REPORT INFORMATION
  Report Type: Spontaneous
  Country: DK (occurrence: None)
  Receive Date: 20120828
  Receipt Date: 20120828
  Transmission Date: 20130627
  Serious: Yes (Other)
  Sender: FDA-Public Use
  Company Number: 2012MA010443

PATIENT
  Sex: Female

DRUGS (3)
  1. DIAZEPAM [Suspect]
  2. ALCOHOL [Suspect]
  3. VENLAFAXINE [Concomitant]

REACTIONS (5)
  - Withdrawal syndrome [None]
  - Depression [None]
  - Fear [None]
  - Crying [None]
  - Alcohol use [None]
